FAERS Safety Report 15605862 (Version 1)
Quarter: 2018Q4

REPORT INFORMATION
  Report Type: Spontaneous
  Country: US (occurrence: US)
  Receive Date: 20181106
  Receipt Date: 20181106
  Transmission Date: 20190205
  Serious: Yes (Hospitalization, Other)
  Sender: FDA-Public Use
  Company Number: None

PATIENT
  Age: 57 Year
  Sex: Male
  Weight: 73.94 kg

DRUGS (2)
  1. LITHIUM. [Suspect]
     Active Substance: LITHIUM
     Indication: MANIA
     Route: 048
     Dates: start: 20180814, end: 20180816
  2. LITHIUM. [Suspect]
     Active Substance: LITHIUM
     Indication: BIPOLAR DISORDER
     Route: 048
     Dates: start: 20180814, end: 20180816

REACTIONS (8)
  - Treatment noncompliance [None]
  - Acute kidney injury [None]
  - Oedema peripheral [None]
  - Oliguria [None]
  - Chronic kidney disease [None]
  - Hyperkalaemia [None]
  - Tremor [None]
  - Hypernatraemia [None]

NARRATIVE: CASE EVENT DATE: 20180816
